FAERS Safety Report 5865977-6 (Version None)
Quarter: 2008Q3

REPORT INFORMATION
  Report Type: 
  Country: None (occurrence: None)
  Receive Date: 20080829
  Receipt Date: 20080821
  Transmission Date: 20090109
  Serious: Yes (Other)
  Sender: FDA-Public Use
  Company Number: GB-BAUSCH-2008BL003627

PATIENT
  Age: 31 Year
  Sex: Female

DRUGS (11)
  1. DEXAMETHASONE TAB [Suspect]
     Indication: ANAESTHESIA
  2. ADRENALINE [Suspect]
     Indication: HYPOTENSION
     Route: 042
  3. ADRENALINE [Suspect]
     Indication: TACHYCARDIA
     Route: 042
  4. MORPHINE [Suspect]
     Indication: ANAESTHESIA
  5. ONDANSETRON [Suspect]
     Indication: DRUG USE FOR UNKNOWN INDICATION
  6. PATENT BLUE V [Suspect]
     Indication: BIOPSY LYMPH GLAND
  7. ALFENTANIL [Concomitant]
     Indication: ANAESTHESIA
  8. AUGMENTIN /UNK/ [Concomitant]
     Indication: DRUG USE FOR UNKNOWN INDICATION
  9. NITROUS OXIDE W/ OXYGEN [Concomitant]
     Indication: MAINTENANCE OF ANAESTHESIA
  10. PROPOFOL [Concomitant]
     Indication: ANAESTHESIA
  11. SEVOFLURANE [Concomitant]
     Indication: MAINTENANCE OF ANAESTHESIA

REACTIONS (2)
  - ANAPHYLACTIC REACTION [None]
  - DRUG INEFFECTIVE [None]
